FAERS Safety Report 6842728-X (Version None)
Quarter: 2010Q3

REPORT INFORMATION
  Report Type: 
  Country: None (occurrence: None)
  Receive Date: 20100714
  Receipt Date: 20071221
  Transmission Date: 20110219
  Serious: Yes (Other)
  Sender: FDA-Public Use
  Company Number: US-PFIZER INC-2007064805

PATIENT
  Sex: Male
  Weight: 72 kg

DRUGS (1)
  1. CHANTIX [Suspect]
     Indication: SMOKING CESSATION THERAPY
     Dates: start: 20070601

REACTIONS (9)
  - BACK PAIN [None]
  - CHEST PAIN [None]
  - DISSOCIATION [None]
  - DYSPNOEA [None]
  - ERECTILE DYSFUNCTION [None]
  - HOT FLUSH [None]
  - HYPERSENSITIVITY [None]
  - NAUSEA [None]
  - VISION BLURRED [None]
